FAERS Safety Report 22269649 (Version 4)
Quarter: 2025Q1

REPORT INFORMATION
  Report Type: Spontaneous
  Country: CA (occurrence: CA)
  Receive Date: 20230501
  Receipt Date: 20250115
  Transmission Date: 20250409
  Serious: Yes (Other)
  Sender: PFIZER
  Company Number: CA-PFIZER INC-2021361133

PATIENT
  Age: 21 Year
  Sex: Female
  Weight: 65 kg

DRUGS (18)
  1. RUXIENCE [Suspect]
     Active Substance: RITUXIMAB-PVVR
     Indication: Granulomatosis with polyangiitis
     Route: 041
     Dates: start: 20210713, end: 20210727
  2. RUXIENCE [Suspect]
     Active Substance: RITUXIMAB-PVVR
     Route: 041
     Dates: start: 202107
  3. RUXIENCE [Suspect]
     Active Substance: RITUXIMAB-PVVR
     Route: 041
     Dates: start: 20220512, end: 20220526
  4. RUXIENCE [Suspect]
     Active Substance: RITUXIMAB-PVVR
     Route: 042
     Dates: start: 20221220
  5. RUXIENCE [Suspect]
     Active Substance: RITUXIMAB-PVVR
     Route: 042
     Dates: start: 20230606
  6. RUXIENCE [Suspect]
     Active Substance: RITUXIMAB-PVVR
     Route: 042
     Dates: start: 20240122
  7. RUXIENCE [Suspect]
     Active Substance: RITUXIMAB-PVVR
     Route: 042
     Dates: start: 20240724
  8. VITAMIN B12 [Concomitant]
     Active Substance: CYANOCOBALAMIN
  9. CRANBERRY [Concomitant]
     Active Substance: CRANBERRY
  10. FOLIC ACID [Concomitant]
     Active Substance: FOLIC ACID
     Route: 048
  11. LEFLUNOMIDE [Concomitant]
     Active Substance: LEFLUNOMIDE
     Dosage: 20 MG, 1X/DAY
     Route: 065
     Dates: start: 202007
  12. MAGNESIUM [Concomitant]
     Active Substance: MAGNESIUM
  13. METHOTREXATE [Concomitant]
     Active Substance: METHOTREXATE
     Dosage: 20 MG, WEEKLY
     Route: 065
     Dates: start: 201902
  14. METHOTREXATE [Concomitant]
     Active Substance: METHOTREXATE
     Dosage: 20 MG, WEEKLY
     Dates: start: 20190306
  15. PREDNISONE [Concomitant]
     Active Substance: PREDNISONE
     Dosage: 20 MG, 1X/DAY (INCREASE PREDNISONE TO 20MG/D)
  16. PREDNISONE [Concomitant]
     Active Substance: PREDNISONE
     Route: 048
     Dates: start: 201902
  17. PRIMROSE OIL [Concomitant]
  18. VITAMIN D NOS [Concomitant]
     Active Substance: CHOLECALCIFEROL\ERGOCALCIFEROL

REACTIONS (11)
  - Bronchostenosis [Recovering/Resolving]
  - Nasal discomfort [Unknown]
  - Skin exfoliation [Unknown]
  - Nasal septum disorder [Unknown]
  - Dyspnoea [Unknown]
  - Intervertebral disc protrusion [Unknown]
  - Off label use [Unknown]
  - Off label use [Unknown]
  - Off label use [Unknown]
  - Intentional product use issue [Unknown]
  - Inappropriate schedule of product administration [Unknown]

NARRATIVE: CASE EVENT DATE: 20210101
